FAERS Safety Report 9312654 (Version 2)
Quarter: 2013Q2

REPORT INFORMATION
  Report Type: Spontaneous
  Country: US (occurrence: US)
  Receive Date: 20130528
  Receipt Date: 20130531
  Transmission Date: 20140414
  Serious: Yes (Other)
  Sender: FDA-Public Use
  Company Number: US-TEVA-408343USA

PATIENT
  Sex: 0

DRUGS (1)
  1. PROAIR HFA [Suspect]
     Indication: ASTHMA
     Route: 055

REACTIONS (6)
  - Chest discomfort [Unknown]
  - Drug ineffective [Unknown]
  - Asthma [Unknown]
  - Adverse event [Unknown]
  - Drug effect decreased [Unknown]
  - Drug effect delayed [Unknown]
